FAERS Safety Report 10185502 (Version 3)
Quarter: 2014Q2

REPORT INFORMATION
  Report Type: Report from Study
  Country: BR (occurrence: BR)
  Receive Date: 20140521
  Receipt Date: 20140617
  Transmission Date: 20141212
  Serious: Yes (Other)
  Sender: FDA-Public Use
  Company Number: PHHY2014BR059801

PATIENT
  Sex: Female
  Weight: 47 kg

DRUGS (5)
  1. ACLASTA [Suspect]
     Indication: OSTEOPOROSIS
     Dosage: 5 MG/100ML ONCE IN A YEAR
     Route: 042
  2. ACLASTA [Suspect]
     Dosage: 5 MG/100ML ONCE IN A YEAR
     Route: 042
     Dates: start: 2012
  3. LOTAR [Concomitant]
     Indication: CARDIAC DISORDER
     Dosage: 1 DF, DAILY
  4. SIMVASTATIN [Concomitant]
     Indication: BLOOD CHOLESTEROL ABNORMAL
     Dosage: 1 DF, DAILY
     Dates: start: 2012
  5. SULFASALAZINE [Concomitant]
     Indication: CROHN^S DISEASE
     Dosage: 1 DF, DAILY

REACTIONS (4)
  - Macular degeneration [Not Recovered/Not Resolved]
  - Vision blurred [Not Recovered/Not Resolved]
  - Concomitant disease aggravated [Not Recovered/Not Resolved]
  - Dry eye [Unknown]
